FAERS Safety Report 9795395 (Version 1)
Quarter: 2014Q1

REPORT INFORMATION
  Report Type: Spontaneous
  Country: FR (occurrence: FR)
  Receive Date: 20140103
  Receipt Date: 20140103
  Transmission Date: 20141002
  Serious: Yes (Hospitalization)
  Sender: FDA-Public Use
  Company Number: FR-ROCHE-1328531

PATIENT
  Age: 65 Year
  Sex: Female

DRUGS (13)
  1. BACTRIM [Suspect]
     Indication: PRODUCT USED FOR UNKNOWN INDICATION
     Route: 065
  2. ROCEPHINE [Suspect]
     Indication: PRODUCT USED FOR UNKNOWN INDICATION
     Route: 065
  3. ROVAMYCINE [Suspect]
     Indication: PRODUCT USED FOR UNKNOWN INDICATION
     Route: 065
  4. MOPRAL (FRANCE) [Suspect]
     Indication: PRODUCT USED FOR UNKNOWN INDICATION
     Route: 065
  5. LOVENOX [Suspect]
     Indication: PRODUCT USED FOR UNKNOWN INDICATION
     Route: 065
  6. TAHOR [Concomitant]
     Indication: HYPERCHOLESTEROLAEMIA
  7. GLUCOR [Concomitant]
     Indication: DIABETES MELLITUS
  8. GLICLAZIDE [Concomitant]
     Indication: DIABETES MELLITUS
  9. SOLU-MEDROL [Concomitant]
     Route: 065
     Dates: start: 20131108
  10. PREDNISONE [Concomitant]
     Route: 065
  11. ENDOXAN [Concomitant]
     Route: 065
  12. MESNA [Concomitant]
  13. IVERMECTINE [Concomitant]
     Route: 065
     Dates: start: 20131108

REACTIONS (4)
  - Rash maculo-papular [Recovered/Resolved]
  - Hepatocellular injury [Recovered/Resolved]
  - Eosinophilia [Recovered/Resolved]
  - Drug reaction with eosinophilia and systemic symptoms [Recovered/Resolved]
